FAERS Safety Report 23214591 (Version 1)
Quarter: 2023Q4

REPORT INFORMATION
  Report Type: Spontaneous
  Country: US (occurrence: US)
  Receive Date: 20231121
  Receipt Date: 20231121
  Transmission Date: 20240109
  Serious: Yes (Hospitalization)
  Sender: FDA-Public Use
  Company Number: US-BRISTOL-MYERS SQUIBB COMPANY-2023-164509

PATIENT
  Age: 76 Year
  Sex: Male

DRUGS (1)
  1. REVLIMID [Suspect]
     Active Substance: LENALIDOMIDE
     Indication: Plasma cell myeloma
     Dosage: DOSE : 10 MG;     FREQ : NUMBER 21. TAKE ONE EVERY DAY FOR 21 DAYS, AND OFF FOR 7 DAYS
     Route: 048
     Dates: start: 20210613

REACTIONS (3)
  - Back pain [Unknown]
  - Pain in extremity [Unknown]
  - Neuralgia [Unknown]
